FAERS Safety Report 11111222 (Version 1)
Quarter: 2015Q2

REPORT INFORMATION
  Report Type: Spontaneous
  Country: US (occurrence: US)
  Receive Date: 20150513
  Receipt Date: 20150513
  Transmission Date: 20150821
  Serious: Yes (Hospitalization, Other)
  Sender: FDA-Public Use
  Company Number: US-ACTELION-A-US2015-117634

PATIENT
  Age: 42 Year
  Sex: Male

DRUGS (5)
  1. RIOCIGUAT [Concomitant]
     Active Substance: RIOCIGUAT
  2. TRACLEER [Suspect]
     Active Substance: BOSENTAN\BOSENTAN MONOHYDRATE
     Indication: PULMONARY ARTERIAL HYPERTENSION
     Dosage: UNK
     Route: 048
  3. LASIX [Concomitant]
     Active Substance: FUROSEMIDE
  4. VELETRI [Suspect]
     Active Substance: EPOPROSTENOL
     Indication: PULMONARY ARTERIAL HYPERTENSION
     Dosage: 13.75 NG/KG, PER MIN
     Route: 042
     Dates: start: 20141014
  5. LOVENOX [Concomitant]
     Active Substance: ENOXAPARIN SODIUM

REACTIONS (4)
  - Gastroenteritis viral [Recovering/Resolving]
  - Abdominal distension [Recovering/Resolving]
  - Cardiac failure congestive [Unknown]
  - Fluid retention [Unknown]

NARRATIVE: CASE EVENT DATE: 20150410
